FAERS Safety Report 13986896 (Version 2)
Quarter: 2017Q4

REPORT INFORMATION
  Report Type: Spontaneous
  Country: CA (occurrence: CA)
  Receive Date: 20170919
  Receipt Date: 20171006
  Transmission Date: 20180321
  Serious: Yes (Other)
  Sender: FDA-Public Use
  Company Number: CA-GEHC-2017CSU002837

PATIENT

DRUGS (1)
  1. VISIPAQUE [Suspect]
     Active Substance: IODIXANOL
     Indication: ABDOMINAL PAIN
     Dosage: 100 ML, SINGLE
     Route: 042
     Dates: start: 20170824, end: 20170824

REACTIONS (7)
  - Pruritus [Unknown]
  - Malaise [Unknown]
  - Abdominal discomfort [Unknown]
  - Chest discomfort [Unknown]
  - Burning sensation [Unknown]
  - Vomiting [Unknown]
  - Urticaria [Unknown]

NARRATIVE: CASE EVENT DATE: 20170824
